FAERS Safety Report 25779005 (Version 2)
Quarter: 2025Q4

REPORT INFORMATION
  Report Type: Spontaneous
  Country: US (occurrence: US)
  Receive Date: 20250909
  Receipt Date: 20251010
  Transmission Date: 20260118
  Serious: No
  Sender: ABBVIE
  Company Number: US-ABBVIE-6446335

PATIENT
  Sex: Female

DRUGS (1)
  1. BOTOX COSMETIC [Suspect]
     Active Substance: ONABOTULINUMTOXINA
     Indication: Skin cosmetic procedure
     Dosage: TIME INTERVAL: AS NECESSARY: FORM STRENGTH: 40 UNITS
     Route: 030
     Dates: start: 20250828, end: 20250828

REACTIONS (2)
  - Blood pressure increased [Unknown]
  - Palpitations [Unknown]

NARRATIVE: CASE EVENT DATE: 20250101
